FAERS Safety Report 9555299 (Version 1)
Quarter: 2013Q3

REPORT INFORMATION
  Report Type: Spontaneous
  Country: US (occurrence: None)
  Receive Date: 20130801
  Receipt Date: 20130801
  Transmission Date: 20140515
  Serious: Yes (Other)
  Sender: FDA-Public Use
  Company Number: OPCR20130184

PATIENT
  Age: 63 Year
  Sex: Male

DRUGS (1)
  1. OPANA ER [Suspect]
     Indication: PAIN
     Route: 048
     Dates: start: 2012

REACTIONS (3)
  - Wrong technique in drug usage process [None]
  - Drug ineffective [None]
  - Drug effect delayed [None]
